FAERS Safety Report 7022736-9 (Version None)
Quarter: 2010Q3

REPORT INFORMATION
  Report Type: 
  Country: None (occurrence: None)
  Receive Date: 20100930
  Receipt Date: 20100927
  Transmission Date: 20110219
  Serious: Yes (Hospitalization)
  Sender: FDA-Public Use
  Company Number: A0881694A

PATIENT
  Age: 77 Year
  Sex: Male
  Weight: 88.6 kg

DRUGS (6)
  1. AVODART [Suspect]
     Dosage: .5MG PER DAY
     Route: 048
     Dates: start: 20070212, end: 20100628
  2. SYNTHROID [Concomitant]
  3. LIPITOR [Concomitant]
  4. AMBIEN [Concomitant]
  5. FEXOFENADINE HCL [Concomitant]
  6. OMEPRAZOLE [Concomitant]

REACTIONS (7)
  - BREAST ENLARGEMENT [None]
  - BREAST FIBROSIS [None]
  - BREAST MASS [None]
  - BREAST PAIN [None]
  - EMOTIONAL DISTRESS [None]
  - GYNAECOMASTIA [None]
  - PAIN [None]
